FAERS Safety Report 5023716-5 (Version None)
Quarter: 2006Q2

REPORT INFORMATION
  Report Type: 
  Country: None (occurrence: None)
  Receive Date: 20060606
  Receipt Date: 20060523
  Transmission Date: 20061013
  Serious: Yes (Hospitalization)
  Sender: FDA-Public Use
  Company Number: FI-2006-001507

PATIENT
  Age: 52 Year
  Sex: Male

DRUGS (5)
  1. BETASERON [Suspect]
     Indication: MULTIPLE SCLEROSIS
     Dosage: SEE IMAGE
     Dates: start: 20010101, end: 20030101
  2. BETASERON [Suspect]
     Indication: MULTIPLE SCLEROSIS
     Dosage: SEE IMAGE
     Dates: start: 20030101, end: 20060424
  3. GLATIRAMER (GLATIRAMER) [Concomitant]
  4. REBIF [Concomitant]
  5. TIZANIDINE HCL [Concomitant]

REACTIONS (13)
  - ACUTE FEBRILE NEUTROPHILIC DERMATOSIS [None]
  - CUTANEOUS SARCOIDOSIS [None]
  - GENERAL PHYSICAL HEALTH DETERIORATION [None]
  - INCISION SITE HAEMATOMA [None]
  - INFECTION [None]
  - INFLAMMATION [None]
  - INFLUENZA LIKE ILLNESS [None]
  - INJECTION SITE REACTION [None]
  - INJECTION SITE ULCER [None]
  - PAIN IN EXTREMITY [None]
  - PANNICULITIS [None]
  - THERAPY NON-RESPONDER [None]
  - VASCULITIS [None]
